FAERS Safety Report 6389756-9 (Version None)
Quarter: 2009Q4

REPORT INFORMATION
  Report Type: 
  Country: None (occurrence: None)
  Receive Date: 20091002
  Receipt Date: 20091002
  Transmission Date: 20100525
  Serious: Yes (Hospitalization)
  Sender: FDA-Public Use
  Company Number: None

PATIENT
  Age: 51 Year
  Sex: Male

DRUGS (2)
  1. AMOXICILLIN AND CLAVULANATE POTASSIUM [Suspect]
     Indication: URINARY TRACT INFECTION
     Dosage: 875/125 MG BID PO
     Route: 048
     Dates: start: 20090325, end: 20090403
  2. PIPERACILLIN AND TAZOBACTAM [Suspect]
     Indication: URINARY TRACT INFECTION
     Dosage: 3/.375 GM QID IV
     Route: 042
     Dates: start: 20090323, end: 20090325

REACTIONS (2)
  - CLOSTRIDIUM DIFFICILE COLITIS [None]
  - TACHYCARDIA [None]
